FAERS Safety Report 24008412 (Version 1)
Quarter: 2024Q2

REPORT INFORMATION
  Report Type: Spontaneous
  Country: ES (occurrence: ES)
  Receive Date: 20240625
  Receipt Date: 20240625
  Transmission Date: 20240715
  Serious: Yes (Life-Threatening, Hospitalization)
  Sender: FDA-Public Use
  Company Number: ES-ROCHE-69498

PATIENT
  Age: 43 Year
  Sex: Male
  Weight: 85 kg

DRUGS (9)
  1. VALIUM [Suspect]
     Active Substance: DIAZEPAM
     Indication: Product used for unknown indication
     Dosage: FORM STRENGTH=10 MG/2ML
     Route: 048
     Dates: start: 19960612, end: 19960612
  2. METAMIZOLE MAGNESIUM [Suspect]
     Active Substance: METAMIZOLE MAGNESIUM
     Indication: Pain
     Route: 030
     Dates: start: 19960612, end: 19960612
  3. PROPOFOL [Suspect]
     Active Substance: PROPOFOL
     Indication: Surgery
     Route: 042
     Dates: start: 19960612, end: 19960612
  4. NEOSTIGMINE [Suspect]
     Active Substance: NEOSTIGMINE
     Indication: Surgery
     Route: 042
     Dates: start: 19960612, end: 19960612
  5. ISOFLURANE [Suspect]
     Active Substance: ISOFLURANE
     Indication: Surgery
     Dates: start: 19960612, end: 19960612
  6. FENTANYL [Suspect]
     Active Substance: FENTANYL\FENTANYL CITRATE
     Indication: Sedation
     Route: 042
     Dates: start: 19960612, end: 19960612
  7. INDAPAMIDE [Concomitant]
     Active Substance: INDAPAMIDE
     Indication: Product used for unknown indication
     Route: 065
  8. BISOPROLOL FUMARATE [Concomitant]
     Active Substance: BISOPROLOL FUMARATE
     Indication: Product used for unknown indication
     Route: 065
  9. DULCOLAX PRODUCT NOS [Concomitant]
     Indication: Pain
     Route: 065

REACTIONS (2)
  - Agranulocytosis [Recovered/Resolved]
  - Pyrexia [Recovered/Resolved]

NARRATIVE: CASE EVENT DATE: 19960617
